FAERS Safety Report 8337183-7 (Version None)
Quarter: 2012Q2

REPORT INFORMATION
  Report Type: 
  Country: None (occurrence: None)
  Receive Date: 20120504
  Receipt Date: 20120430
  Transmission Date: 20120825
  Serious: Yes (Hospitalization, Other)
  Sender: FDA-Public Use
  Company Number: US-ASTRAZENECA-2011SE03359

PATIENT
  Age: 62 Year
  Sex: Female

DRUGS (3)
  1. CHEMOTHERAPY [Suspect]
     Route: 065
  2. ARIMIDEX [Suspect]
     Route: 048
  3. TOPROL-XL [Suspect]
     Route: 048

REACTIONS (7)
  - ONYCHOMADESIS [None]
  - MALAISE [None]
  - LUNG NEOPLASM MALIGNANT [None]
  - PNEUMONIA [None]
  - HORMONE LEVEL ABNORMAL [None]
  - BREAST CANCER [None]
  - VIRAL INFECTION [None]
